FAERS Safety Report 13758518 (Version 1)
Quarter: 2017Q3

REPORT INFORMATION
  Report Type: Spontaneous
  Country: US (occurrence: US)
  Receive Date: 20170717
  Receipt Date: 20170717
  Transmission Date: 20171127
  Serious: Yes (Other)
  Sender: FDA-Public Use
  Company Number: US-AUROBINDO-AUR-APL-2017-35212

PATIENT
  Age: 28 Year
  Sex: Male

DRUGS (2)
  1. BUPROPION. [Interacting]
     Active Substance: BUPROPION
     Indication: EX-TOBACCO USER
     Route: 065
  2. RISPERIDONE 4MG [Suspect]
     Active Substance: RISPERIDONE
     Indication: PRODUCT USED FOR UNKNOWN INDICATION
     Dosage: 4 MG, ONCE A DAY
     Route: 065

REACTIONS (3)
  - Drug interaction [Unknown]
  - Akathisia [Unknown]
  - Drug level increased [Unknown]
